FAERS Safety Report 23152781 (Version 2)
Quarter: 2023Q4

REPORT INFORMATION
  Report Type: Spontaneous
  Country: US (occurrence: US)
  Receive Date: 20231107
  Receipt Date: 20231108
  Transmission Date: 20240109
  Serious: Yes (Hospitalization, Disabling, Other)
  Sender: FDA-Public Use
  Company Number: US-009507513-2311USA000505

PATIENT
  Age: 54 Year
  Sex: Female

DRUGS (8)
  1. KEYTRUDA [Suspect]
     Active Substance: PEMBROLIZUMAB
     Indication: Triple negative breast cancer
     Dosage: 200 MG EVERY 21 DAYS
     Route: 042
     Dates: start: 20230518, end: 2023
  2. CARBOPLATIN [Suspect]
     Active Substance: CARBOPLATIN
     Dosage: UNK
     Dates: start: 20230810
  3. VITAMINS [Concomitant]
     Active Substance: VITAMINS
     Dosage: UNK, QD
  4. AMLODIPINE [Concomitant]
     Active Substance: AMLODIPINE BESYLATE
     Dosage: 2.5 MILLIGRAM
  5. MAGNESIUM [Concomitant]
     Active Substance: MAGNESIUM
     Indication: Routine health maintenance
  6. FAMOTIDINE [Concomitant]
     Active Substance: FAMOTIDINE
  7. VITAMIN C [Concomitant]
     Active Substance: ASCORBIC ACID
  8. CHOLECALCIFEROL [Concomitant]
     Active Substance: CHOLECALCIFEROL

REACTIONS (3)
  - Stevens-Johnson syndrome [Recovered/Resolved]
  - Gait disturbance [Unknown]
  - Dry eye [Unknown]

NARRATIVE: CASE EVENT DATE: 20230629
